FAERS Safety Report 9890471 (Version 1)
Quarter: 2014Q1

REPORT INFORMATION
  Report Type: Spontaneous
  Country: US (occurrence: None)
  Receive Date: 20140211
  Receipt Date: 20140211
  Transmission Date: 20141002
  Serious: Yes (Other)
  Sender: FDA-Public Use
  Company Number: None

PATIENT
  Age: 82 Year
  Sex: Female
  Weight: 79.38 kg

DRUGS (10)
  1. EYLEA [Suspect]
     Indication: AGE-RELATED MACULAR DEGENERATION
     Dosage: 2MG/0.05ML
     Route: 047
     Dates: start: 20140127, end: 20140127
  2. OMEGA [Concomitant]
  3. I-CAPS [Concomitant]
  4. AMOLIDIPINE [Concomitant]
  5. LOSARTAN [Concomitant]
  6. PROZAC [Concomitant]
  7. DILANTIN [Concomitant]
  8. DIAZEPAM [Concomitant]
  9. VOLTAREN GEL [Concomitant]
  10. HYDROCODONE [Concomitant]

REACTIONS (1)
  - Anterior chamber inflammation [None]
